FAERS Safety Report 5114859-6 (Version None)
Quarter: 2006Q3

REPORT INFORMATION
  Report Type: 
  Country: None (occurrence: None)
  Receive Date: 20060926
  Receipt Date: 20060804
  Transmission Date: 20061208
  Serious: Yes (Death)
  Sender: FDA-Public Use
  Company Number: DE-BAYER-200611026BVD

PATIENT

DRUGS (2)
  1. AVELOX [Suspect]
     Indication: UNEVALUABLE EVENT
  2. PANTOZOL [Concomitant]
     Indication: UNEVALUABLE EVENT

REACTIONS (1)
  - HEPATIC ENZYME INCREASED [None]
